FAERS Safety Report 6580531-9 (Version None)
Quarter: 2010Q1

REPORT INFORMATION
  Report Type: 
  Country: None (occurrence: None)
  Receive Date: 20100212
  Receipt Date: 20100120
  Transmission Date: 20100710
  Serious: No
  Sender: FDA-Public Use
  Company Number: US-B.I. PHARMACEUTICALS,INC./RIDGEFIELD-2010-BP-01705BP

PATIENT
  Age: 37 Year
  Sex: Female

DRUGS (1)
  1. METACAM ORAL SUSPENSION [Suspect]
     Indication: ACCIDENTAL EXPOSURE
     Route: 031
     Dates: start: 20100117

REACTIONS (2)
  - ACCIDENTAL EXPOSURE [None]
  - EYE IRRITATION [None]
